FAERS Safety Report 18074500 (Version 3)
Quarter: 2020Q3

REPORT INFORMATION
  Report Type: Report from Study
  Country: None (occurrence: JP)
  Receive Date: 20200727
  Receipt Date: 20200924
  Transmission Date: 20201103
  Serious: Yes (Death, Other)
  Sender: FDA-Public Use
  Company Number: JP-ABBVIE-20P-087-3498205-00

PATIENT
  Age: 82 Year
  Sex: Male

DRUGS (1)
  1. LEUPLIN [Suspect]
     Active Substance: LEUPROLIDE ACETATE
     Indication: BULBOSPINAL MUSCULAR ATROPHY CONGENITAL
     Route: 050
     Dates: start: 201901, end: 20200710

REACTIONS (5)
  - Pneumonia aspiration [Fatal]
  - Altered state of consciousness [Fatal]
  - Loss of consciousness [Fatal]
  - Aspiration [Fatal]
  - Pleural effusion [Unknown]

NARRATIVE: CASE EVENT DATE: 20200709
